FAERS Safety Report 8073166-2 (Version None)
Quarter: 2012Q1

REPORT INFORMATION
  Report Type: 
  Country: None (occurrence: None)
  Receive Date: 20120126
  Receipt Date: 20120116
  Transmission Date: 20120608
  Serious: Yes (Other)
  Sender: FDA-Public Use
  Company Number: JP-ELI_LILLY_AND_COMPANY-JP201201001070

PATIENT
  Age: 85 Year
  Sex: Female

DRUGS (1)
  1. FORTEO [Suspect]
     Dosage: UNK
     Route: 058
     Dates: start: 20111220

REACTIONS (4)
  - ASPARTATE AMINOTRANSFERASE INCREASED [None]
  - INTESTINAL HAEMORRHAGE [None]
  - ALANINE AMINOTRANSFERASE INCREASED [None]
  - NASOPHARYNGITIS [None]
